FAERS Safety Report 7332613-1 (Version None)
Quarter: 2011Q1

REPORT INFORMATION
  Report Type: 
  Country: None (occurrence: None)
  Receive Date: 20110304
  Receipt Date: 20110228
  Transmission Date: 20110831
  Serious: Yes (Hospitalization, Other)
  Sender: FDA-Public Use
  Company Number: US-PFIZER INC-2007022826

PATIENT
  Sex: Female

DRUGS (7)
  1. ZOLOFT [Suspect]
     Dosage: UNK
  2. FLEXERIL [Suspect]
  3. DILANTIN [Concomitant]
     Dosage: UNK
  4. NEURONTIN [Suspect]
     Dosage: 400 MG, 3X/DAY
     Dates: start: 20030612, end: 20041013
  5. ASPIRIN [Concomitant]
     Dosage: UNK
  6. BENADRYL [Concomitant]
     Dosage: UNK
  7. NEURONTIN [Suspect]
     Indication: CONVULSION
     Dosage: 100MG-400MG BID - 800MG BID
     Dates: start: 19990628, end: 20030401

REACTIONS (10)
  - BLOOD CREATININE INCREASED [None]
  - HYPOGLYCAEMIA [None]
  - AMNESIA [None]
  - DRUG INEFFECTIVE [None]
  - SUICIDE ATTEMPT [None]
  - COMA [None]
  - CONFUSIONAL STATE [None]
  - OLIGURIA [None]
  - HEPATIC FAILURE [None]
  - MULTIPLE DRUG OVERDOSE [None]
